FAERS Safety Report 21580714 (Version 5)
Quarter: 2023Q1

REPORT INFORMATION
  Report Type: Spontaneous
  Country: JP (occurrence: JP)
  Receive Date: 20221111
  Receipt Date: 20230118
  Transmission Date: 20230417
  Serious: Yes (Hospitalization)
  Sender: FDA-Public Use
  Company Number: JP-ASTELLAS-2022JP016473

PATIENT
  Age: 86 Year
  Sex: Male
  Weight: 59 kg

DRUGS (5)
  1. PADCEV [Suspect]
     Active Substance: ENFORTUMAB VEDOTIN-EJFV
     Indication: Transitional cell carcinoma
     Dosage: 70 MG, WEEKLY DOSING FOR 3 CONSECUTIVE WEEKS, RESTING ON WEEK 4
     Route: 041
     Dates: start: 20221004, end: 20221018
  2. PADCEV [Suspect]
     Active Substance: ENFORTUMAB VEDOTIN-EJFV
     Indication: Bladder cancer recurrent
  3. RINDERON V [Concomitant]
     Active Substance: BETAMETHASONE VALERATE
     Indication: Rash
     Dosage: UNK UNK, UNKNOWN FREQ.
     Route: 065
     Dates: start: 20221011
  4. BETAMETHASONE DIPROPIONATE [Concomitant]
     Active Substance: BETAMETHASONE DIPROPIONATE
     Indication: Rash
     Dosage: UNK UNK, UNKNOWN FREQ.
     Route: 065
     Dates: start: 20221013
  5. GLYCOSAMINOGLYCANS [Concomitant]
     Active Substance: GLYCOSAMINOGLYCANS
     Indication: Rash
     Dosage: UNK UNK, UNKNOWN FREQ.
     Route: 065
     Dates: start: 20221013

REACTIONS (3)
  - Decreased appetite [Recovered/Resolved]
  - Hyperglycaemia [Recovered/Resolved]
  - Rash [Recovered/Resolved]

NARRATIVE: CASE EVENT DATE: 20221011
